FAERS Safety Report 12354765 (Version 1)
Quarter: 2016Q2

REPORT INFORMATION
  Report Type: Spontaneous
  Country: US (occurrence: US)
  Receive Date: 20160511
  Receipt Date: 20160511
  Transmission Date: 20160815
  Serious: No
  Sender: FDA-Public Use
  Company Number: US-MYLANLABS-2015M1027574

PATIENT
  Age: 56 Year
  Sex: Male

DRUGS (1)
  1. FEXOFENADINE HYDROCHLORIDE TABLETS, USP [Suspect]
     Active Substance: FEXOFENADINE HYDROCHLORIDE
     Dosage: 180 MG, UNK
     Dates: start: 20150810

REACTIONS (2)
  - Accidental exposure to product packaging [Recovered/Resolved]
  - No adverse event [Recovered/Resolved]

NARRATIVE: CASE EVENT DATE: 20150810
